FAERS Safety Report 6986200-5 (Version None)
Quarter: 2010Q3

REPORT INFORMATION
  Report Type: 
  Country: None (occurrence: None)
  Receive Date: 20100915
  Receipt Date: 20090602
  Transmission Date: 20110219
  Serious: No
  Sender: FDA-Public Use
  Company Number: US-WYE-H09583109

PATIENT
  Sex: Female
  Weight: 64.47 kg

DRUGS (3)
  1. PRISTIQ [Suspect]
     Indication: DEPRESSION
     Route: 048
     Dates: start: 20090504
  2. LIPITOR [Concomitant]
  3. THYROID [Concomitant]

REACTIONS (5)
  - FEAR [None]
  - FEELING JITTERY [None]
  - MIDDLE INSOMNIA [None]
  - NIGHT SWEATS [None]
  - PANIC REACTION [None]
